FAERS Safety Report 7792629-8 (Version None)
Quarter: 2011Q4

REPORT INFORMATION
  Report Type: 
  Country: None (occurrence: None)
  Receive Date: 20111003
  Receipt Date: 20110921
  Transmission Date: 20120403
  Serious: No
  Sender: FDA-Public Use
  Company Number: US-B.I. PHARMACEUTICALS,INC./RIDGEFIELD-2011-BP-13280BP

PATIENT
  Sex: Female

DRUGS (14)
  1. PRADAXA [Suspect]
     Indication: ATRIAL FIBRILLATION
     Dosage: 300 MG
     Route: 048
     Dates: start: 20110211, end: 20110219
  2. PRADAXA [Suspect]
     Dosage: 150 MG
     Route: 048
     Dates: start: 20110301
  3. PRADAXA [Suspect]
     Dosage: 150 MG
     Route: 048
     Dates: start: 20110722
  4. METOPROLOL TARTRATE [Concomitant]
     Indication: HYPERTENSION
     Dosage: 200 MG
     Route: 048
  5. HYDROCHLOROTHIAZIDE [Concomitant]
     Indication: HYPERTENSION
     Dosage: 12.5 MG
     Route: 048
     Dates: start: 20110301
  6. DIGOXIN [Concomitant]
     Indication: TACHYCARDIA
  7. HYDROCHLOROTHIAZIDE [Concomitant]
     Indication: OEDEMA
  8. PRADAXA [Suspect]
     Dosage: 150 MG
     Route: 048
     Dates: start: 20110222, end: 20110225
  9. HYDROCHLOROTHIAZIDE [Concomitant]
     Indication: FLUID RETENTION
  10. DIGOXIN [Concomitant]
     Indication: ATRIAL FIBRILLATION
     Dosage: 250 MG
     Route: 048
     Dates: start: 20110501
  11. LASIX [Concomitant]
     Indication: CARDIAC FAILURE CONGESTIVE
  12. ALLEGRA [Concomitant]
     Indication: MULTIPLE ALLERGIES
  13. FUROSEMIDE [Concomitant]
     Indication: FLUID RETENTION
     Dosage: 20 MG
     Route: 048
  14. CLARITIN [Concomitant]
     Indication: MULTIPLE ALLERGIES
     Route: 048

REACTIONS (14)
  - SWELLING FACE [None]
  - SWOLLEN TONGUE [None]
  - HAEMORRHAGE SUBCUTANEOUS [None]
  - EPISTAXIS [None]
  - OEDEMA PERIPHERAL [None]
  - DIARRHOEA [None]
  - LIP SWELLING [None]
  - CYANOSIS [None]
  - NAUSEA [None]
  - VASODILATATION [None]
  - VOMITING [None]
  - RASH MACULAR [None]
  - PARAESTHESIA [None]
  - BLOOD PRESSURE INADEQUATELY CONTROLLED [None]
